FAERS Safety Report 9744663 (Version 1)
Quarter: 2013Q4

REPORT INFORMATION
  Report Type: Spontaneous
  Country: FR (occurrence: FR)
  Receive Date: 20131210
  Receipt Date: 20131210
  Transmission Date: 20140711
  Serious: Yes (Hospitalization)
  Sender: FDA-Public Use
  Company Number: FR-ASTRAZENECA-2013SE88690

PATIENT
  Age: 29306 Day
  Sex: Female

DRUGS (17)
  1. ATACAND [Suspect]
     Route: 048
     Dates: start: 20131007, end: 20131024
  2. NOVONORM [Concomitant]
  3. LEVOTHYROX [Concomitant]
  4. KENZEN [Concomitant]
     Dates: end: 20131006
  5. ALPRAZOLAM [Concomitant]
     Dates: end: 20131006
  6. VOLTARENE [Concomitant]
  7. DAFLON [Concomitant]
  8. OMEPRAZOLE [Concomitant]
     Dates: end: 20131006
  9. SIMVASTATINE [Concomitant]
     Dates: end: 20131006
  10. INEXIUM [Concomitant]
     Dates: start: 20131006, end: 20131018
  11. ZOPICLONE [Concomitant]
     Dates: start: 20131006, end: 20131018
  12. TAHOR [Concomitant]
     Dates: start: 20131006, end: 20131018
  13. LOVENOX [Concomitant]
     Dates: start: 20131006, end: 20131015
  14. MOVICOL [Concomitant]
     Dates: start: 20131006
  15. INDAPAMIDE [Concomitant]
     Dates: start: 20131006
  16. SEROPLEX [Concomitant]
     Dates: start: 20131006
  17. ASPIRINE PROTECT [Concomitant]
     Dates: start: 20131006

REACTIONS (2)
  - Eczema nummular [Recovered/Resolved]
  - Eosinophilia [Recovering/Resolving]
